FAERS Safety Report 8578508-7 (Version None)
Quarter: 2012Q3

REPORT INFORMATION
  Report Type: 
  Country: None (occurrence: None)
  Receive Date: 20120808
  Receipt Date: 20120730
  Transmission Date: 20120928
  Serious: Yes (Other)
  Sender: FDA-Public Use
  Company Number: US-VERTEX PHARMACEUTICALS INC.-AE-2012-011270

PATIENT
  Sex: Male

DRUGS (4)
  1. RIBAVIRIN [Concomitant]
     Indication: HEPATITIS C
     Dates: start: 20120701
  2. PEGINTERFERON ALFA-2A [Concomitant]
     Indication: HEPATITIS C
     Dates: start: 20120701
  3. METHADONE HYDROCHLORIDE [Concomitant]
  4. INCIVEK [Suspect]
     Indication: HEPATITIS C
     Route: 048
     Dates: start: 20120701

REACTIONS (3)
  - SEDATION [None]
  - LOSS OF CONSCIOUSNESS [None]
  - MOOD ALTERED [None]
